FAERS Safety Report 12917566 (Version 3)
Quarter: 2016Q4

REPORT INFORMATION
  Report Type: Spontaneous
  Country: RO (occurrence: RO)
  Receive Date: 20161107
  Receipt Date: 20161117
  Transmission Date: 20170207
  Serious: Yes (Death, Other)
  Sender: FDA-Public Use
  Company Number: RO-ASTELLAS-2016US043403

PATIENT
  Age: 65 Year
  Sex: Male

DRUGS (2)
  1. BONEFOS [Concomitant]
     Active Substance: CLODRONATE DISODIUM
     Indication: LUNG CANCER METASTATIC
     Route: 065
     Dates: start: 201110, end: 201207
  2. TARCEVA [Suspect]
     Active Substance: ERLOTINIB HYDROCHLORIDE
     Indication: LUNG CANCER METASTATIC
     Route: 065
     Dates: start: 201111

REACTIONS (3)
  - Rash [Not Recovered/Not Resolved]
  - Death [Fatal]
  - Cardiac failure [Recovered/Resolved]

NARRATIVE: CASE EVENT DATE: 201111
